FAERS Safety Report 14508909 (Version 2)
Quarter: 2018Q1

REPORT INFORMATION
  Report Type: Report from Study
  Country: None (occurrence: AU)
  Receive Date: 20180209
  Receipt Date: 20180330
  Transmission Date: 20180509
  Serious: Yes (Other)
  Sender: FDA-Public Use
  Company Number: AU-ABBVIE-17K-008-2153144-00

PATIENT
  Age: 63 Year
  Sex: Female

DRUGS (1)
  1. HUMIRA [Suspect]
     Active Substance: ADALIMUMAB
     Indication: RHEUMATOID ARTHRITIS
     Route: 058
     Dates: start: 20170601, end: 20180126

REACTIONS (11)
  - Immunodeficiency [Recovering/Resolving]
  - Mouth ulceration [Unknown]
  - Arthritis [Recovering/Resolving]
  - Pharyngeal ulceration [Unknown]
  - Lower respiratory tract infection [Recovering/Resolving]
  - Pulmonary fibrosis [Not Recovered/Not Resolved]
  - Drug ineffective [Recovering/Resolving]
  - Drug hypersensitivity [Unknown]
  - Fatigue [Unknown]
  - Pneumothorax [Not Recovered/Not Resolved]
  - Productive cough [Not Recovered/Not Resolved]

NARRATIVE: CASE EVENT DATE: 201708
